FAERS Safety Report 4479972-5 (Version None)
Quarter: 2004Q4

REPORT INFORMATION
  Report Type: 
  Country: None (occurrence: None)
  Receive Date: 20041018
  Receipt Date: 20041011
  Transmission Date: 20050328
  Serious: Yes (Other)
  Sender: FDA-Public Use
  Company Number: 200409170

PATIENT
  Age: 54 Year
  Sex: Male

DRUGS (1)
  1. STREPTASE [Suspect]
     Indication: MYOCARDIAL INFARCTION
     Dosage: 1.5 MIU DAILY
     Dates: start: 20030915, end: 20030915

REACTIONS (1)
  - CONVULSION [None]
